FAERS Safety Report 5412389-5 (Version None)
Quarter: 2007Q3

REPORT INFORMATION
  Report Type: 
  Country: None (occurrence: None)
  Receive Date: 20070813
  Receipt Date: 20070808
  Transmission Date: 20080115
  Serious: Yes (Hospitalization)
  Sender: FDA-Public Use
  Company Number: FR-BRISTOL-MYERS SQUIBB COMPANY-13873773

PATIENT
  Age: 17 Year
  Sex: Female

DRUGS (20)
  1. AMIKLIN POWDER [Suspect]
     Route: 042
     Dates: start: 20070522, end: 20070612
  2. HOLOXAN [Suspect]
     Indication: HODGKIN'S DISEASE
     Route: 042
     Dates: start: 20070522, end: 20070527
  3. ETOPOSIDE [Suspect]
     Route: 042
     Dates: start: 20070522, end: 20070527
  4. BACTRIM [Suspect]
     Route: 042
     Dates: start: 20070529, end: 20070601
  5. NAVELBINE [Suspect]
     Indication: HODGKIN'S DISEASE
     Route: 042
     Dates: start: 20070522, end: 20070527
  6. FORTUM [Suspect]
     Route: 042
     Dates: start: 20070529, end: 20070603
  7. VANCOMYCIN HCL [Suspect]
     Route: 042
     Dates: start: 20070529, end: 20070612
  8. SYMBICORT [Concomitant]
     Indication: ASTHMA
     Route: 055
  9. BRICANYL [Concomitant]
     Indication: ASTHMA
  10. DESLORATADINE [Concomitant]
     Indication: ASTHMA
  11. SINGULAIR [Concomitant]
     Indication: ASTHMA
  12. MITOGUAZONE [Concomitant]
     Indication: CHEMOTHERAPY
     Route: 042
     Dates: start: 20070522, end: 20070527
  13. GRANOCYTE [Concomitant]
     Route: 042
  14. LOVENOX [Concomitant]
     Route: 042
  15. RANIPLEX [Concomitant]
     Route: 042
  16. CLONAZEPAM [Concomitant]
     Route: 048
  17. ATARAX [Concomitant]
     Route: 048
  18. MORPHINE [Concomitant]
     Route: 042
  19. PERFALGAN [Concomitant]
     Route: 042
  20. FUNGIZONE [Concomitant]
     Route: 042

REACTIONS (8)
  - ASTHENIA [None]
  - DERMATITIS BULLOUS [None]
  - EPIDERMAL NECROSIS [None]
  - INFECTION [None]
  - OEDEMA [None]
  - PURPURA [None]
  - RASH MACULO-PAPULAR [None]
  - SKIN STRIAE [None]
